FAERS Safety Report 5942057-2 (Version None)
Quarter: 2008Q4

REPORT INFORMATION
  Report Type: 
  Country: None (occurrence: None)
  Receive Date: 20081105
  Receipt Date: 20081031
  Transmission Date: 20090506
  Serious: Yes (Death)
  Sender: FDA-Public Use
  Company Number: A0753195A

PATIENT
  Age: 58 Year
  Sex: Female
  Weight: 51.8 kg

DRUGS (3)
  1. TYKERB [Suspect]
     Indication: DRUG USE FOR UNKNOWN INDICATION
     Dosage: 1250MG PER DAY
     Route: 048
     Dates: start: 20071022, end: 20081001
  2. GEMZAR [Concomitant]
     Indication: BREAST CANCER
     Route: 065
     Dates: start: 20071201
  3. DECADRON [Concomitant]
     Indication: DRUG USE FOR UNKNOWN INDICATION
     Dosage: 4MG SEE DOSAGE TEXT
     Dates: start: 20080923

REACTIONS (1)
  - DEATH [None]
